FAERS Safety Report 20638731 (Version 1)
Quarter: 2022Q1

REPORT INFORMATION
  Report Type: Spontaneous
  Country: JP (occurrence: JP)
  Receive Date: 20220325
  Receipt Date: 20220325
  Transmission Date: 20220423
  Serious: Yes (Hospitalization)
  Sender: FDA-Public Use
  Company Number: JP-SIGMAPHARM LABORATORIES, LLC-2022SIG00015

PATIENT
  Age: 73 Year
  Sex: Male

DRUGS (4)
  1. ASENAPINE [Suspect]
     Active Substance: ASENAPINE
     Indication: Dementia
     Dosage: 5 MG, 1X/DAY
     Route: 065
  2. ASENAPINE [Suspect]
     Active Substance: ASENAPINE
     Dosage: 10 MG 1X/DAY
     Route: 065
  3. CLONAZEPAM [Concomitant]
     Active Substance: CLONAZEPAM
     Dosage: 0.5 MG, 1X/DAY
     Route: 065
  4. GALANTAMINE [Concomitant]
     Active Substance: GALANTAMINE
     Indication: Dementia
     Dosage: 8 MG, 1X/DAY
     Route: 065

REACTIONS (1)
  - Tourette^s disorder [Recovered/Resolved]
